FAERS Safety Report 5166521-1 (Version None)
Quarter: 2006Q4

REPORT INFORMATION
  Report Type: 
  Country: None (occurrence: None)
  Receive Date: 20061130
  Receipt Date: 20061130
  Transmission Date: 20070319
  Serious: Yes (Hospitalization)
  Sender: FDA-Public Use
  Company Number: None

PATIENT
  Age: 65 Year
  Sex: Male

DRUGS (1)
  1. PROPOFOL [Suspect]
     Indication: AGITATION
     Dosage: SEE IMAGE
     Route: 041
     Dates: start: 20060920, end: 20060921

REACTIONS (1)
  - TORSADE DE POINTES [None]
